FAERS Safety Report 7014687-0 (Version None)
Quarter: 2010Q3

REPORT INFORMATION
  Report Type: 
  Country: None (occurrence: None)
  Receive Date: 20100927
  Receipt Date: 20100920
  Transmission Date: 20110219
  Serious: Yes (Hospitalization)
  Sender: FDA-Public Use
  Company Number: IL-ROCHE-728092

PATIENT
  Age: 63 Year
  Sex: Female

DRUGS (10)
  1. CAPECITABINE [Suspect]
     Dosage: ON DAYS 1 TO 14 EVERY 3 WEEKS
     Route: 048
  2. CAPECITABINE [Suspect]
     Route: 048
  3. NEUPOGEN [Suspect]
     Indication: PRODUCT USED FOR UNKNOWN INDICATION
     Route: 065
  4. CETUXIMAB [Suspect]
     Dosage: LOADING DOSE
     Route: 042
  5. CETUXIMAB [Suspect]
     Route: 042
  6. CETUXIMAB [Suspect]
     Route: 042
  7. CETUXIMAB [Suspect]
     Route: 042
  8. OXALIPLATIN [Suspect]
     Dosage: DAY 1, EVERY 2 WEEKS
     Route: 042
  9. OXALIPLATIN [Suspect]
     Dosage: ON DAY 1
     Route: 042
  10. IRINOTECAN HCL [Concomitant]
     Route: 042

REACTIONS (13)
  - COLON CANCER METASTATIC [None]
  - DEVICE RELATED SEPSIS [None]
  - FANCONI SYNDROME [None]
  - HAEMOGLOBIN DECREASED [None]
  - HYPOKALAEMIA [None]
  - ILEUS PARALYTIC [None]
  - MALIGNANT NEOPLASM PROGRESSION [None]
  - METABOLIC ACIDOSIS [None]
  - NEPHROPATHY TOXIC [None]
  - RENAL TUBULAR ACIDOSIS [None]
  - SEPSIS [None]
  - THERAPEUTIC RESPONSE DECREASED [None]
  - WHITE BLOOD CELL COUNT DECREASED [None]
